FAERS Safety Report 9115947 (Version 1)
Quarter: 2013Q1

REPORT INFORMATION
  Report Type: Spontaneous
  Country: IT (occurrence: IT)
  Receive Date: 20130225
  Receipt Date: 20130225
  Transmission Date: 20140127
  Serious: Yes (Hospitalization)
  Sender: FDA-Public Use
  Company Number: IT-BRISTOL-MYERS SQUIBB COMPANY-17402082

PATIENT
  Age: 88 Year
  Sex: Female

DRUGS (9)
  1. COUMADIN TABS 5 MG [Suspect]
     Indication: ATRIAL FIBRILLATION
     Route: 048
     Dates: start: 20111121, end: 20121121
  2. PANTOPRAZOLE [Concomitant]
  3. LASIX [Concomitant]
  4. DAPAROX [Concomitant]
  5. CONTROL [Concomitant]
  6. TALOFEN [Concomitant]
  7. LANOXIN [Concomitant]
  8. TRILAFON [Concomitant]
  9. ENAPREN [Concomitant]

REACTIONS (2)
  - Haematoma [Recovering/Resolving]
  - Anaemia [Recovering/Resolving]
